FAERS Safety Report 11030086 (Version 1)
Quarter: 2015Q2

REPORT INFORMATION
  Report Type: Spontaneous
  Country: US (occurrence: US)
  Receive Date: 20150415
  Receipt Date: 20150415
  Transmission Date: 20150821
  Serious: No
  Sender: FDA-Public Use
  Company Number: US-BIOGENIDEC-2015BI045726

PATIENT
  Age: 56 Year
  Sex: Female

DRUGS (13)
  1. AMPYRA [Concomitant]
     Active Substance: DALFAMPRIDINE
  2. ULTRAM [Concomitant]
     Active Substance: TRAMADOL HYDROCHLORIDE
  3. VALTREX [Concomitant]
     Active Substance: VALACYCLOVIR HYDROCHLORIDE
  4. TECFIDERA [Suspect]
     Active Substance: DIMETHYL FUMARATE
     Indication: MULTIPLE SCLEROSIS
     Route: 048
     Dates: start: 20141115
  5. SYNTHROID [Concomitant]
     Active Substance: LEVOTHYROXINE SODIUM
  6. LASIX [Concomitant]
     Active Substance: FUROSEMIDE
  7. MOTRIN [Concomitant]
     Active Substance: IBUPROFEN
  8. ZOCOR [Concomitant]
     Active Substance: SIMVASTATIN
  9. GABAPENTIN. [Concomitant]
     Active Substance: GABAPENTIN
  10. METAXOLONE [Concomitant]
     Active Substance: METAXALONE
  11. GLUCOPHAGE [Concomitant]
     Active Substance: METFORMIN HYDROCHLORIDE
  12. TOPAMAX [Concomitant]
     Active Substance: TOPIRAMATE
  13. IMITREX [Concomitant]
     Active Substance: SUMATRIPTAN\SUMATRIPTAN SUCCINATE

REACTIONS (2)
  - Night sweats [Unknown]
  - Hot flush [Unknown]

NARRATIVE: CASE EVENT DATE: 20150318
